FAERS Safety Report 6332566-9 (Version None)
Quarter: 2009Q3

REPORT INFORMATION
  Report Type: 
  Country: None (occurrence: None)
  Receive Date: 20090828
  Receipt Date: 20090824
  Transmission Date: 20100115
  Serious: Yes (Other)
  Sender: FDA-Public Use
  Company Number: US-BAYER-200919173NA

PATIENT
  Age: 64 Year
  Sex: Female

DRUGS (7)
  1. NEXAVAR [Suspect]
     Indication: COLON CANCER
     Dosage: TOTAL DAILY DOSE: 400 MG  UNIT DOSE: 200 MG
     Route: 048
     Dates: start: 20090508, end: 20090501
  2. NEXAVAR [Suspect]
     Dosage: TOTAL DAILY DOSE: 800 MG  UNIT DOSE: 200 MG
     Route: 048
     Dates: start: 20090421, end: 20090428
  3. LOPRESSOR [Concomitant]
     Dosage: TOTAL DAILY DOSE: 50 MG
     Route: 048
  4. LOPRESSOR [Concomitant]
     Dosage: TOTAL DAILY DOSE: 250 MG
     Route: 048
  5. URSODIOL [Concomitant]
  6. PROTONIX [Concomitant]
  7. VITAMIN D [Concomitant]

REACTIONS (12)
  - ABDOMINAL RIGIDITY [None]
  - BLISTER [None]
  - BLOOD ALKALINE PHOSPHATASE INCREASED [None]
  - BLOOD BILIRUBIN INCREASED [None]
  - BLOOD PRESSURE INCREASED [None]
  - DIARRHOEA [None]
  - DYSPHONIA [None]
  - GAIT DISTURBANCE [None]
  - HEADACHE [None]
  - HEPATIC ENZYME INCREASED [None]
  - JAUNDICE [None]
  - PAIN IN EXTREMITY [None]
